FAERS Safety Report 19506131 (Version 1)
Quarter: 2021Q3

REPORT INFORMATION
  Report Type: Spontaneous
  Country: US (occurrence: US)
  Receive Date: 20210708
  Receipt Date: 20210708
  Transmission Date: 20211014
  Serious: No
  Sender: FDA-Public Use
  Company Number: None

PATIENT
  Age: 58 Year
  Sex: Female
  Weight: 63.45 kg

DRUGS (1)
  1. MAVYRET [Suspect]
     Active Substance: GLECAPREVIR\PIBRENTASVIR
     Indication: CHRONIC HEPATITIS C
     Route: 048
     Dates: start: 20210618

REACTIONS (5)
  - Antiviral prophylaxis [None]
  - Rash papular [None]
  - Rash pruritic [None]
  - COVID-19 immunisation [None]
  - Immunisation [None]

NARRATIVE: CASE EVENT DATE: 20210618
